FAERS Safety Report 19092583 (Version 1)
Quarter: 2021Q2

REPORT INFORMATION
  Report Type: Spontaneous
  Country: ES (occurrence: ES)
  Receive Date: 20210405
  Receipt Date: 20210405
  Transmission Date: 20210717
  Serious: Yes (Life-Threatening, Hospitalization)
  Sender: FDA-Public Use
  Company Number: ES-BAXTER-2021BAX006073

PATIENT
  Age: 72 Year
  Sex: Female

DRUGS (2)
  1. GENOXAL [Suspect]
     Active Substance: CYCLOPHOSPHAMIDE
     Indication: PLASMA CELL MYELOMA
     Route: 042
     Dates: start: 20210310, end: 20210310
  2. BORTEZOMIB ACCORD [Suspect]
     Active Substance: BORTEZOMIB
     Indication: PLASMA CELL MYELOMA
     Dosage: BORTEZOMIB ACCORD 3.5 MG POWDER FOR INJECTABLE SOLUTION GENERIC PRODUCT, 1 VIAL
     Route: 058
     Dates: start: 20210310, end: 20210310

REACTIONS (2)
  - Cardio-respiratory arrest [Recovered/Resolved]
  - Acute myocardial infarction [Recovered/Resolved]

NARRATIVE: CASE EVENT DATE: 20210310
